FAERS Safety Report 5089382-8 (Version None)
Quarter: 2006Q3

REPORT INFORMATION
  Report Type: 
  Country: None (occurrence: None)
  Receive Date: 20060822
  Receipt Date: 20060808
  Transmission Date: 20061208
  Serious: Yes (Death, Hospitalization)
  Sender: FDA-Public Use
  Company Number: AZAUS200600280

PATIENT
  Age: 41 Year
  Sex: Male

DRUGS (2)
  1. AZACITIDINE [Suspect]
     Indication: NASOPHARYNGEAL CANCER
     Dosage: 37.5 MG/M2 (DAYS 1-11 (SKIPPING SUNDAYS)), SUBCUTANEOUS
     Route: 058
     Dates: start: 20060515, end: 20060630
  2. VORINOSTAT [Suspect]
     Indication: NASOPHARYNGEAL CANCER
     Dosage: 400 MG (200 MG, TWICE DAILY, DAYS 1-14), ORAL
     Route: 048
     Dates: start: 20060515, end: 20060703

REACTIONS (5)
  - ABDOMINAL PAIN [None]
  - GENERAL PHYSICAL HEALTH DETERIORATION [None]
  - LIVER FUNCTION TEST ABNORMAL [None]
  - RESPIRATORY FAILURE [None]
  - SINUS TACHYCARDIA [None]
